FAERS Safety Report 19759255 (Version 1)
Quarter: 2021Q3

REPORT INFORMATION
  Report Type: Other
  Country: NL (occurrence: NL)
  Receive Date: 20210829
  Receipt Date: 20210829
  Transmission Date: 20211014
  Serious: Yes (Other)
  Sender: FDA-Public Use
  Company Number: NL-YUNG SHIN PHARMACEUTICAL IND.  CO., LTD.-2117785

PATIENT
  Age: 27 Year
  Sex: Female

DRUGS (1)
  1. CEPHALEXIN. [Suspect]
     Active Substance: CEPHALEXIN
     Indication: ARTHROPOD BITE

REACTIONS (4)
  - Systemic lupus erythematosus [Unknown]
  - Leukopenia [Unknown]
  - Thrombocytopenia [Unknown]
  - Acute kidney injury [Unknown]
